FAERS Safety Report 21605694 (Version 2)
Quarter: 2022Q4

REPORT INFORMATION
  Report Type: Spontaneous
  Country: JP (occurrence: JP)
  Receive Date: 20221116
  Receipt Date: 20221225
  Transmission Date: 20230113
  Serious: No
  Sender: FDA-Public Use
  Company Number: JP-002147023-NVSJ2022JP101260

PATIENT
  Age: 46 Year
  Sex: Female

DRUGS (1)
  1. GLYCOPYRROLATE\INDACATEROL\MOMETASONE FUROATE [Suspect]
     Active Substance: GLYCOPYRROLATE\INDACATEROL\MOMETASONE FUROATE
     Indication: Asthma
     Dosage: 1DF:INDACATEROL ACETATE 150UG, GLYCOPYRRONIUM BROMIDE 50UG, MOMETASONE FUROATE 160 UG

REACTIONS (1)
  - Dysphonia [Recovering/Resolving]
